FAERS Safety Report 22219534 (Version 2)
Quarter: 2023Q2

REPORT INFORMATION
  Report Type: Spontaneous
  Country: GB (occurrence: GB)
  Receive Date: 20230417
  Receipt Date: 20230424
  Transmission Date: 20230721
  Serious: Yes (Death, Other)
  Sender: FDA-Public Use
  Company Number: GB-MHRA-MED-202304140932072180-NFHQS

PATIENT
  Age: 73 Year
  Sex: Male

DRUGS (1)
  1. AXICABTAGENE CILOLEUCEL [Suspect]
     Active Substance: AXICABTAGENE CILOLEUCEL
     Indication: B-cell lymphoma recurrent
     Dosage: UNK
     Route: 065
     Dates: end: 20200825

REACTIONS (3)
  - Progressive multifocal leukoencephalopathy [Fatal]
  - Blindness [Unknown]
  - Asthenia [Unknown]
